FAERS Safety Report 6329170-5 (Version None)
Quarter: 2009Q3

REPORT INFORMATION
  Report Type: 
  Country: None (occurrence: None)
  Receive Date: 20090826
  Receipt Date: 20090119
  Transmission Date: 20100115
  Serious: No
  Sender: FDA-Public Use
  Company Number: US-ASTRAZENECA-2009UW01440

PATIENT
  Age: 30032 Day
  Sex: Female

DRUGS (1)
  1. IRESSA [Suspect]
     Route: 048
     Dates: start: 20020201

REACTIONS (2)
  - CONVULSION [None]
  - FALL [None]
